FAERS Safety Report 7276669 (Version 5)
Quarter: 2014Q4

REPORT INFORMATION
  Report Type: Spontaneous
  Country: US (occurrence: US)
  Receive Date: 20100212
  Receipt Date: 20141223
  Transmission Date: 20150529
  Serious: Yes (Life-Threatening, Hospitalization, Disabling, Other)
  Sender: FDA-Public Use
  Company Number: US-BAYER-201013648NA

PATIENT
  Age: 22 Year
  Sex: Female
  Weight: 86.17 kg

DRUGS (11)
  1. YAZ [Suspect]
     Active Substance: DROSPIRENONE\ETHINYL ESTRADIOL
     Indication: MENSTRUATION IRREGULAR
  2. AMBIEN [Concomitant]
     Active Substance: ZOLPIDEM TARTRATE
     Indication: INSOMNIA
  3. MOLYBDENUM [Concomitant]
     Active Substance: MOLYBDENUM
     Indication: ALLERGY TO CHEMICALS
  4. ELAVIL [Concomitant]
     Active Substance: AMITRIPTYLINE HYDROCHLORIDE
  5. LIPITOR [Concomitant]
     Active Substance: ATORVASTATIN CALCIUM
  6. YAZ [Suspect]
     Active Substance: DROSPIRENONE\ETHINYL ESTRADIOL
     Indication: ACNE
     Dosage: UNK
     Route: 048
     Dates: start: 2007, end: 200802
  7. SILVER COLLOIDAL [Concomitant]
     Dosage: UNK
     Dates: start: 2007, end: 200802
  8. CALCIUM [Concomitant]
     Active Substance: CALCIUM
  9. YAZ [Suspect]
     Active Substance: DROSPIRENONE\ETHINYL ESTRADIOL
     Indication: PREMENSTRUAL DYSPHORIC DISORDER
     Dosage: UNK
     Route: 048
     Dates: start: 200805, end: 200812
  10. SILVER COLLOIDAL [Concomitant]
     Dosage: UNK
  11. SONATA [Concomitant]
     Active Substance: ZALEPLON

REACTIONS (10)
  - Glomerulonephritis minimal lesion [None]
  - Acute kidney injury [None]
  - Organ failure [None]
  - Organ failure [None]
  - Acute kidney injury [None]
  - Paresis [None]
  - Abasia [None]
  - Paresis [None]
  - Nephritic syndrome [Recovering/Resolving]
  - Nephritic syndrome [None]

NARRATIVE: CASE EVENT DATE: 200802
